FAERS Safety Report 12994377 (Version 1)
Quarter: 2016Q4

REPORT INFORMATION
  Report Type: Report from Study
  Country: FR (occurrence: FR)
  Receive Date: 20161202
  Receipt Date: 20161202
  Transmission Date: 20170207
  Serious: Yes (Other)
  Sender: FDA-Public Use
  Company Number: FR-TOLMAR, INC.-2016FR012506

PATIENT
  Age: 63 Year
  Sex: Male
  Weight: 80 kg

DRUGS (4)
  1. SOLUPRED                           /00016201/ [Concomitant]
     Active Substance: PREDNISOLONE
  2. ELIGARD [Suspect]
     Active Substance: LEUPROLIDE ACETATE
     Indication: PROSTATE CANCER
     Dosage: 45 MG, 1 PER CYCLE
     Route: 058
     Dates: start: 20150910
  3. KARDEGIC [Concomitant]
     Active Substance: ASPIRIN LYSINE
  4. RAMIPRIL. [Concomitant]
     Active Substance: RAMIPRIL
     Dosage: UNK
     Dates: start: 2012

REACTIONS (1)
  - Vascular pain [Not Recovered/Not Resolved]

NARRATIVE: CASE EVENT DATE: 20160924
